FAERS Safety Report 18074483 (Version 4)
Quarter: 2021Q2

REPORT INFORMATION
  Report Type: Other
  Country: US (occurrence: US)
  Receive Date: 20200727
  Receipt Date: 20210517
  Transmission Date: 20210717
  Serious: Yes (Other)
  Sender: FDA-Public Use
  Company Number: US-ROCHE-2644065

PATIENT
  Age: 33 Year
  Sex: Female
  Weight: 122.58 kg

DRUGS (4)
  1. OCREVUS [Suspect]
     Active Substance: OCRELIZUMAB
     Indication: RELAPSING-REMITTING MULTIPLE SCLEROSIS
     Dosage: ONGOING: NO, DATE OF TREATMENT: 18/FEB/2020, 08/JAN/2020, 17/JUL/2019, 26/JAN/2019, 09/JAN/2019, 08/
     Route: 042
     Dates: start: 201609
  2. ALBUTEROL. [Concomitant]
     Active Substance: ALBUTEROL
     Indication: ASTHMA
     Dosage: AS NEEDED FOR BREATHING ;ONGOING: YES
     Dates: start: 1991
  3. OCREVUS [Suspect]
     Active Substance: OCRELIZUMAB
     Indication: MULTIPLE SCLEROSIS
     Route: 042
     Dates: start: 20190109
  4. ALBUTEROL. [Concomitant]
     Active Substance: ALBUTEROL
     Dosage: ONE PUFF TWICE A DAY ;ONGOING: NO
     Dates: start: 201912

REACTIONS (4)
  - Back pain [Not Recovered/Not Resolved]
  - Off label use [Unknown]
  - Upper respiratory tract infection [Not Recovered/Not Resolved]
  - Maternal exposure during pregnancy [Unknown]

NARRATIVE: CASE EVENT DATE: 20191217
